FAERS Safety Report 9106494 (Version 1)
Quarter: 2013Q1

REPORT INFORMATION
  Report Type: Spontaneous
  Country: US (occurrence: US)
  Receive Date: 20130221
  Receipt Date: 20130221
  Transmission Date: 20140127
  Serious: No
  Sender: FDA-Public Use
  Company Number: US-ROXANE LABORATORIES, INC.-2013-RO-00293RO

PATIENT
  Age: 44 Year
  Sex: Female
  Weight: 85 kg

DRUGS (2)
  1. FLUTICASONE [Suspect]
     Indication: MIDDLE EAR EFFUSION
     Route: 055
     Dates: start: 20130215, end: 20130217
  2. AMLODIPINE [Concomitant]
     Indication: HYPERTENSION

REACTIONS (4)
  - Rash pustular [Not Recovered/Not Resolved]
  - Rhinitis [Recovered/Resolved]
  - Nasal oedema [Recovered/Resolved]
  - Nasal discomfort [Recovered/Resolved]
